FAERS Safety Report 6918680-5 (Version None)
Quarter: 2010Q3

REPORT INFORMATION
  Report Type: 
  Country: None (occurrence: None)
  Receive Date: 20100811
  Receipt Date: 20100729
  Transmission Date: 20110219
  Serious: Yes (Hospitalization)
  Sender: FDA-Public Use
  Company Number: PHFR2010GB01282

PATIENT
  Sex: Male

DRUGS (2)
  1. CLOZARIL [Suspect]
     Indication: SCHIZOPHRENIA
     Dosage: UNK
     Route: 048
     Dates: start: 20090216
  2. LORAZEPAM [Suspect]
     Dosage: 7 X 1MG

REACTIONS (4)
  - CONFUSIONAL STATE [None]
  - INCOHERENT [None]
  - OVERDOSE [None]
  - TACHYCARDIA [None]
